FAERS Safety Report 19303915 (Version 1)
Quarter: 2021Q2

REPORT INFORMATION
  Report Type: Spontaneous
  Country: CA (occurrence: CA)
  Receive Date: 20210525
  Receipt Date: 20210525
  Transmission Date: 20210717
  Serious: Yes (Other)
  Sender: FDA-Public Use
  Company Number: CA-SAMSUNG BIOEPIS-SB-2021-12503

PATIENT
  Age: 61 Year
  Sex: Female
  Weight: 120 kg

DRUGS (2)
  1. METHOTREXATE. [Concomitant]
     Active Substance: METHOTREXATE
     Indication: PRODUCT USED FOR UNKNOWN INDICATION
     Dosage: UNKNOWN
     Route: 065
  2. INFLIXIMAB [Suspect]
     Active Substance: INFLIXIMAB
     Indication: NEUROSARCOIDOSIS
     Route: 042

REACTIONS (9)
  - Condition aggravated [Unknown]
  - Inflammation [Unknown]
  - Nodule [Unknown]
  - Injection site inflammation [Unknown]
  - Weight increased [Unknown]
  - Blood pressure increased [Unknown]
  - Off label use [Unknown]
  - Intentional product use issue [Unknown]
  - Product use in unapproved indication [Unknown]
